FAERS Safety Report 17732414 (Version 1)
Quarter: 2020Q2

REPORT INFORMATION
  Report Type: Spontaneous
  Country: CN (occurrence: CN)
  Receive Date: 20200501
  Receipt Date: 20200501
  Transmission Date: 20200714
  Serious: Yes (Hospitalization, Other)
  Sender: FDA-Public Use
  Company Number: CN-ABBVIE-20K-035-3387514-00

PATIENT
  Age: 67 Year
  Sex: Male

DRUGS (3)
  1. POLYENE PHOSPHATIDYLCHOLINE [Concomitant]
     Active Substance: PHOSPHOLIPID
     Indication: PRODUCT USED FOR UNKNOWN INDICATION
     Dosage: IVGTT QD,
     Route: 042
  2. IMBRUVICA [Suspect]
     Active Substance: IBRUTINIB
     Indication: CHRONIC MYELOID LEUKAEMIA
     Route: 048
     Dates: start: 20200224, end: 20200331
  3. GLUTATHIONE [Concomitant]
     Active Substance: GLUTATHIONE
     Indication: PRODUCT USED FOR UNKNOWN INDICATION
     Dosage: IVGTT QD,
     Route: 042

REACTIONS (10)
  - Hospitalisation [Unknown]
  - Leukocytosis [Recovering/Resolving]
  - Arteriosclerosis [Recovering/Resolving]
  - Haemoglobin decreased [Unknown]
  - Hepatic enzyme increased [Recovering/Resolving]
  - Blood creatine phosphokinase increased [Unknown]
  - Off label use [Unknown]
  - Fatigue [Recovering/Resolving]
  - Blood lactate dehydrogenase increased [Unknown]
  - Product use in unapproved indication [Unknown]

NARRATIVE: CASE EVENT DATE: 20200330
